FAERS Safety Report 8769521 (Version 1)
Quarter: 2012Q4

REPORT INFORMATION
  Report Type: 
  Country: US (occurrence: US)
  Receive Date: 20120905
  Receipt Date: 20120905
  Transmission Date: 20130627
  Serious: No
  Sender: FDA-Public Use
  Company Number: US-B.I. PHARMACEUTICALS,INC./RIDGEFIELD-2012-BP-21141BP

PATIENT
  Age: 69 Year
  Sex: Male

DRUGS (4)
  1. SPIRIVA [Suspect]
     Indication: CHRONIC OBSTRUCTIVE PULMONARY DISEASE
     Dosage: 18 mcg
     Route: 055
     Dates: start: 2009
  2. SPIRIVA [Suspect]
     Route: 048
     Dates: start: 20120829, end: 20120829
  3. TRICOR [Concomitant]
     Indication: BLOOD CHOLESTEROL ABNORMAL
     Route: 048
     Dates: start: 2007
  4. COREG [Concomitant]
     Indication: HYPERTENSION
     Dosage: 80 mg
     Route: 048
     Dates: start: 2007

REACTIONS (1)
  - Incorrect route of drug administration [Recovered/Resolved]
